FAERS Safety Report 7211581-7 (Version None)
Quarter: 2011Q1

REPORT INFORMATION
  Report Type: 
  Country: None (occurrence: None)
  Receive Date: 20110105
  Receipt Date: 20101228
  Transmission Date: 20110831
  Serious: No
  Sender: FDA-Public Use
  Company Number: US-PFIZER INC-2010180679

PATIENT
  Sex: Male
  Weight: 78 kg

DRUGS (5)
  1. LOVASTATIN [Suspect]
     Indication: BLOOD CHOLESTEROL INCREASED
     Dosage: 40 MG, DAILY
     Route: 048
     Dates: start: 20090101, end: 20090101
  2. METOPROLOL [Concomitant]
     Indication: BLOOD PRESSURE ABNORMAL
     Dosage: UNK
  3. LOVASTATIN [Suspect]
     Dosage: 40 MG, 1X/DAY
     Dates: start: 20100901, end: 20101227
  4. LIPITOR [Suspect]
     Dosage: UNK
     Dates: start: 20101227
  5. LIPITOR [Suspect]
     Indication: BLOOD CHOLESTEROL INCREASED
     Dosage: 10 MG, DAILY
     Route: 048
     Dates: start: 20090101, end: 20090101

REACTIONS (1)
  - BLOOD TRIGLYCERIDES INCREASED [None]
